FAERS Safety Report 4302567-0 (Version None)
Quarter: 2004Q1

REPORT INFORMATION
  Report Type: 
  Country: None (occurrence: None)
  Receive Date: 20040218
  Receipt Date: 20030311
  Transmission Date: 20041129
  Serious: Yes (Hospitalization)
  Sender: FDA-Public Use
  Company Number: 03-03-0287

PATIENT
  Age: 73 Year
  Sex: Male
  Weight: 221 kg

DRUGS (4)
  1. HYDROCHLOROTHIAZIDE TAB [Suspect]
     Indication: HYPERTENSION
     Dosage: 12.5-25MG QD ORAL
     Route: 048
     Dates: start: 20001109, end: 20020829
  2. ISOPTIN SR [Concomitant]
  3. TARKA [Concomitant]
  4. TARKA 240/2MG [Concomitant]

REACTIONS (1)
  - DIZZINESS [None]
